FAERS Safety Report 5162151-6 (Version None)
Quarter: 2006Q4

REPORT INFORMATION
  Report Type: 
  Country: None (occurrence: None)
  Receive Date: 20061121
  Receipt Date: 20061108
  Transmission Date: 20070319
  Serious: Yes (Life-Threatening, Disabling)
  Sender: FDA-Public Use
  Company Number: HQWYE868108NOV06

PATIENT
  Age: 49 Year
  Sex: Female

DRUGS (2)
  1. CORDARONE [Suspect]
     Indication: SUPRAVENTRICULAR TACHYCARDIA
     Dosage: 150 MG DILUTED IN 5% GLUCOSE SOLUTION TO BE GIVEN OVER 20 MIN INTRAVENOUS
     Route: 042
     Dates: start: 20061005, end: 20061005
  2. PROPAFENONE HCL [Concomitant]

REACTIONS (8)
  - ANOXIC ENCEPHALOPATHY [None]
  - BLOOD PRESSURE IMMEASURABLE [None]
  - DYSPNOEA [None]
  - FLUSHING [None]
  - INFUSION RELATED REACTION [None]
  - LOSS OF CONSCIOUSNESS [None]
  - OXYGEN SATURATION ABNORMAL [None]
  - RESPIRATORY ARREST [None]
